FAERS Safety Report 20742149 (Version 1)
Quarter: 2022Q2

REPORT INFORMATION
  Report Type: Report from Study
  Country: US (occurrence: US)
  Receive Date: 20220423
  Receipt Date: 20220423
  Transmission Date: 20220721
  Serious: Yes (Hospitalization, Other)
  Sender: FDA-Public Use
  Company Number: US-Accord-261162

PATIENT
  Sex: Female
  Weight: 112.49 kg

DRUGS (12)
  1. CLOZAPINE [Suspect]
     Active Substance: CLOZAPINE
     Indication: Schizophrenia
  2. THORAZINE [Concomitant]
     Active Substance: CHLORPROMAZINE
  3. LITHIUM [Concomitant]
     Active Substance: LITHIUM
  4. KLONOPIN [Concomitant]
     Active Substance: CLONAZEPAM
  5. ELIQUIS [Concomitant]
     Active Substance: APIXABAN
  6. VITAMIN D [Concomitant]
     Active Substance: VITAMIN D NOS
  7. FOLIC ACID [Concomitant]
     Active Substance: FOLIC ACID
  8. LEVOTHYROXINE [Concomitant]
     Active Substance: LEVOTHYROXINE
  9. LACTULOSE [Concomitant]
     Active Substance: LACTULOSE
  10. METFORMIN [Concomitant]
     Active Substance: METFORMIN HYDROCHLORIDE
  11. PANTOPRAZOLE [Concomitant]
     Active Substance: PANTOPRAZOLE
  12. SENNA [Concomitant]
     Active Substance: SENNA LEAF\SENNOSIDES\SENNOSIDES A AND B

REACTIONS (2)
  - Schizophrenia [Unknown]
  - Treatment noncompliance [Unknown]
